FAERS Safety Report 24356809 (Version 1)
Quarter: 2024Q3

REPORT INFORMATION
  Report Type: Spontaneous
  Country: FR (occurrence: FR)
  Receive Date: 20240924
  Receipt Date: 20240924
  Transmission Date: 20241017
  Serious: Yes (Hospitalization, Other)
  Sender: AUROBINDO
  Company Number: FR-AFSSAPS-AVBX2024000519

PATIENT
  Age: 59 Year
  Sex: Male

DRUGS (4)
  1. OXYCODONE [Suspect]
     Active Substance: OXYCODONE
     Indication: Pain
     Dosage: 30 MILLIGRAM, ONCE A DAY
     Route: 048
     Dates: start: 2022
  2. ZOPICLONE [Suspect]
     Active Substance: ZOPICLONE
     Indication: Insomnia
     Dosage: 11.25 MILLIGRAM, ONCE A DAY
     Route: 048
     Dates: start: 2022
  3. OXAZEPAM [Suspect]
     Active Substance: OXAZEPAM
     Indication: Product used for unknown indication
     Dosage: 70 MILLIGRAM, ONCE A DAY
     Route: 048
     Dates: start: 2022
  4. CLONAZEPAM [Suspect]
     Active Substance: CLONAZEPAM
     Indication: Product used for unknown indication
     Dosage: 0.6 MILLIGRAM, ONCE A DAY
     Route: 048
     Dates: start: 2022

REACTIONS (1)
  - Drug use disorder [Not Recovered/Not Resolved]
